FAERS Safety Report 18385113 (Version 1)
Quarter: 2020Q4

REPORT INFORMATION
  Report Type: Spontaneous
  Country: US (occurrence: US)
  Receive Date: 20201014
  Receipt Date: 20201014
  Transmission Date: 20210114
  Serious: Yes (Other)
  Sender: FDA-Public Use
  Company Number: US-ROCHE-2689360

PATIENT
  Age: 87 Year
  Sex: Male

DRUGS (1)
  1. GAZYVA [Suspect]
     Active Substance: OBINUTUZUMAB
     Indication: CHRONIC LYMPHOCYTIC LEUKAEMIA
     Dosage: ONGOING : NO
     Route: 042

REACTIONS (2)
  - JC polyomavirus test positive [Unknown]
  - Progressive multifocal leukoencephalopathy [Not Recovered/Not Resolved]
